FAERS Safety Report 4835769-5 (Version None)
Quarter: 2005Q4

REPORT INFORMATION
  Report Type: 
  Country: None (occurrence: None)
  Receive Date: 20051123
  Receipt Date: 20051117
  Transmission Date: 20060501
  Serious: Yes (Hospitalization)
  Sender: FDA-Public Use
  Company Number: US-GLAXOSMITHKLINE-A0582734A

PATIENT
  Age: 49 Year
  Sex: Male

DRUGS (9)
  1. BUPROPION HYDROCHLORIDE [Suspect]
     Indication: DEPRESSION
     Dosage: 100MG THREE TIMES PER DAY
     Route: 048
     Dates: end: 20040101
  2. WELLBUTRIN [Suspect]
     Indication: DEPRESSION
     Dosage: 300MG PER DAY
     Route: 048
     Dates: start: 20040101
  3. LASIX [Concomitant]
  4. VASOTEC [Concomitant]
  5. COUMADIN [Concomitant]
  6. COREG [Concomitant]
  7. LANOXIN [Concomitant]
  8. ASPIRIN [Concomitant]
  9. LIPITOR [Concomitant]

REACTIONS (3)
  - ATRIAL FIBRILLATION [None]
  - CONGESTIVE CARDIOMYOPATHY [None]
  - HYPERTENSION [None]
